FAERS Safety Report 5598977-4 (Version None)
Quarter: 2008Q1

REPORT INFORMATION
  Report Type: 
  Country: None (occurrence: None)
  Receive Date: 20080122
  Receipt Date: 20080118
  Transmission Date: 20080703
  Serious: Yes (Death, Hospitalization)
  Sender: FDA-Public Use
  Company Number: GB-BOEHRINGER INGELHEIM PHARMACEUTICALS, INC.-2003-UK-00305UK

PATIENT
  Sex: Male

DRUGS (11)
  1. VIRAMUNE TABLETS (EU/1/97/055/001) [Suspect]
     Indication: HIV TEST POSITIVE
     Dosage: 200MG ONCE DAILY
     Route: 048
     Dates: start: 20030408, end: 20030417
  2. TENOFOVIR [Suspect]
     Indication: HIV TEST POSITIVE
     Dates: start: 20030408, end: 20030417
  3. LAMIVUDINE [Suspect]
     Indication: HIV TEST POSITIVE
     Dates: start: 20030408, end: 20030417
  4. IBUPROFEN [Suspect]
     Indication: PAIN IN EXTREMITY
  5. EFAVIRENZ [Suspect]
     Indication: HIV INFECTION
  6. COMBIVIR [Suspect]
     Indication: HIV INFECTION
  7. CIPROFLOXACIN [Suspect]
     Indication: PNEUMOCYSTIS JIROVECI PNEUMONIA
  8. CLARITHROMYCIN [Suspect]
     Indication: PNEUMOCYSTIS JIROVECI PNEUMONIA
  9. CO-TRIMOXAZOLE [Suspect]
     Indication: PNEUMOCYSTIS JIROVECI PNEUMONIA
  10. SEPTRIN [Concomitant]
     Indication: HIV TEST POSITIVE
     Dosage: 3 TIMES A WEEK
     Route: 048
  11. LOPERAMIDE HCL [Concomitant]
     Indication: DIARRHOEA

REACTIONS (15)
  - AGITATION [None]
  - ALANINE AMINOTRANSFERASE INCREASED [None]
  - BIOPSY LIVER ABNORMAL [None]
  - BLOOD ALKALINE PHOSPHATASE INCREASED [None]
  - BLOOD BILIRUBIN INCREASED [None]
  - CONFUSIONAL STATE [None]
  - COUGH [None]
  - HAEMOGLOBIN DECREASED [None]
  - HEPATOTOXICITY [None]
  - PAIN IN EXTREMITY [None]
  - PYREXIA [None]
  - SCLERAL DISCOLOURATION [None]
  - SEPSIS [None]
  - VANISHING BILE DUCT SYNDROME [None]
  - VOMITING [None]
